FAERS Safety Report 25720939 (Version 1)
Quarter: 2025Q3

REPORT INFORMATION
  Report Type: Spontaneous
  Country: EU (occurrence: EU)
  Receive Date: 20250825
  Receipt Date: 20250825
  Transmission Date: 20251021
  Serious: Yes (Other)
  Sender: STRIDES
  Company Number: EU-STRIDES ARCOLAB LIMITED-2025SP010905

PATIENT
  Age: 75 Year
  Sex: Male

DRUGS (1)
  1. ROSUVASTATIN [Suspect]
     Active Substance: ROSUVASTATIN
     Indication: Hyperlipidaemia
     Route: 065

REACTIONS (1)
  - Dermatomyositis [Unknown]
